FAERS Safety Report 17855064 (Version 2)
Quarter: 2020Q2

REPORT INFORMATION
  Report Type: Spontaneous
  Country: DE (occurrence: DE)
  Receive Date: 20200603
  Receipt Date: 20200625
  Transmission Date: 20200714
  Serious: Yes (Other)
  Sender: FDA-Public Use
  Company Number: DE-ROCHE-324840

PATIENT
  Age: 56 Year
  Sex: Male

DRUGS (2)
  1. CAPECITABINE. [Suspect]
     Active Substance: CAPECITABINE
     Indication: COLORECTAL CANCER
     Dosage: IN A CYCLICAL REGIMEN OF FOURTEEN DAYS OF TREATMENT AND SEVEN DAYS REST.  DISCONTINUED AFTER SIXTEE
     Route: 048
     Dates: start: 1998
  2. FLUOROURACIL. [Suspect]
     Active Substance: FLUOROURACIL
     Indication: COLORECTAL CANCER
     Dosage: 2500 MG/M2, DAILY (AS INTERMITTENT THERAPY (2 WEEKS TREATMENT, 1 WEEK REST), RESULTING IN A CUMULAT)
     Route: 048
     Dates: start: 1998

REACTIONS (2)
  - Second primary malignancy [Recovered/Resolved]
  - Lentigo maligna [Recovered/Resolved]

NARRATIVE: CASE EVENT DATE: 1998
